FAERS Safety Report 10500284 (Version 1)
Quarter: 2014Q4

REPORT INFORMATION
  Report Type: Spontaneous
  Country: US (occurrence: US)
  Receive Date: 20141006
  Receipt Date: 20141006
  Transmission Date: 20150528
  Serious: No
  Sender: FDA-Public Use
  Company Number: US-AMGEN INC.-USASP2014043012

PATIENT
  Age: 77 Year
  Sex: Female

DRUGS (6)
  1. HYDROCHLOROTHIAZIDE. [Concomitant]
     Active Substance: HYDROCHLOROTHIAZIDE
  2. MICARDIS [Concomitant]
     Active Substance: TELMISARTAN
  3. TOPROL XL [Concomitant]
     Active Substance: METOPROLOL SUCCINATE
  4. PROLIA [Suspect]
     Active Substance: DENOSUMAB
     Indication: OSTEOPOROSIS POSTMENOPAUSAL
     Dosage: UNK
     Route: 065
     Dates: start: 201405
  5. NEXIUM [Concomitant]
     Active Substance: ESOMEPRAZOLE MAGNESIUM
     Dosage: UNK
  6. XARELTO [Concomitant]
     Active Substance: RIVAROXABAN

REACTIONS (5)
  - Tooth disorder [Unknown]
  - Pharyngeal disorder [Unknown]
  - Pain in jaw [Unknown]
  - Fall [Unknown]
  - Dizziness [Recovered/Resolved]
